FAERS Safety Report 5317919-X (Version None)
Quarter: 2007Q2

REPORT INFORMATION
  Report Type: 
  Country: None (occurrence: None)
  Receive Date: 20070507
  Receipt Date: 20070504
  Transmission Date: 20071010
  Serious: Yes (Death, Life-Threatening, Hospitalization)
  Sender: FDA-Public Use
  Company Number: B0469225A

PATIENT
  Age: 91 Year
  Sex: Male
  Weight: 60 kg

DRUGS (6)
  1. ARIXTRA [Suspect]
     Dosage: 2.5MG PER DAY
     Route: 058
     Dates: start: 20070312, end: 20070315
  2. ATARAX [Concomitant]
     Indication: ESSENTIAL HYPERTENSION
     Dosage: 200MG PER DAY
     Route: 048
  3. XATRAL [Concomitant]
     Dosage: 10MG PER DAY
     Route: 048
  4. PARACETAMOL [Concomitant]
     Dosage: 4UNIT PER DAY
     Route: 048
  5. AMLOR [Concomitant]
     Indication: ESSENTIAL HYPERTENSION
     Dosage: 10MG PER DAY
     Route: 048
  6. FOZITEC [Concomitant]
     Indication: ESSENTIAL HYPERTENSION
     Dosage: 10MG PER DAY
     Route: 048

REACTIONS (5)
  - CEREBRAL HAEMORRHAGE [None]
  - COMA [None]
  - CONFUSIONAL STATE [None]
  - SUBDURAL HAEMATOMA [None]
  - THROMBOCYTOPENIA [None]
